FAERS Safety Report 9670102 (Version 2)
Quarter: 2013Q4

REPORT INFORMATION
  Report Type: Report from Study
  Country: DE (occurrence: DE)
  Receive Date: 20131105
  Receipt Date: 20131118
  Transmission Date: 20140711
  Serious: Yes (Hospitalization)
  Sender: FDA-Public Use
  Company Number: DE-UCBSA-102044

PATIENT
  Age: 70 Year
  Sex: Female
  Weight: 63 kg

DRUGS (9)
  1. NEUPRO [Suspect]
     Indication: PARKINSON^S DISEASE
     Route: 062
     Dates: start: 20130822
  2. STALEVO [Concomitant]
     Indication: PARKINSON^S DISEASE
     Dosage: 150 MG MG
     Route: 048
     Dates: start: 20130621
  3. STALEVO [Concomitant]
     Indication: PARKINSON^S DISEASE
     Dosage: 100 MG
     Route: 048
     Dates: start: 20130621
  4. MADOPAR DEPOT [Concomitant]
     Indication: PARKINSON^S DISEASE
     Route: 048
     Dates: start: 20130621
  5. ASS [Concomitant]
     Indication: CARDIOVASCULAR EVENT PROPHYLAXIS
     Route: 048
     Dates: start: 2013
  6. SIMVASTATIN [Concomitant]
     Indication: HYPERLIPIDAEMIA
     Dosage: 40 MG
     Route: 048
     Dates: start: 2013
  7. MAGNESIUM [Concomitant]
     Indication: MUSCLE SPASMS
     Dosage: N4, ONCE DAILY
     Route: 048
     Dates: start: 2012
  8. SPASMEX [Concomitant]
     Indication: INCONTINENCE
     Dosage: 20 MG
     Route: 048
     Dates: start: 2013
  9. DICLOFENAC [Concomitant]
     Indication: PAIN
     Dosage: 50 MG
     Route: 048
     Dates: start: 201209

REACTIONS (1)
  - Colorectal cancer stage II [Not Recovered/Not Resolved]
